FAERS Safety Report 7861130-5 (Version None)
Quarter: 2011Q4

REPORT INFORMATION
  Report Type: 
  Country: None (occurrence: None)
  Receive Date: 20111027
  Receipt Date: 20111017
  Transmission Date: 20120403
  Serious: Yes (Hospitalization)
  Sender: FDA-Public Use
  Company Number: US-JNJFOC-20100101055

PATIENT
  Sex: Female
  Weight: 92.99 kg

DRUGS (3)
  1. REMICADE [Suspect]
     Dosage: STOPPED IN 2008
     Route: 042
     Dates: start: 20080601
  2. REMICADE [Suspect]
     Indication: CROHN'S DISEASE
     Route: 042
  3. REMICADE [Suspect]
     Route: 042

REACTIONS (6)
  - BLISTER [None]
  - GASTRIC DISORDER [None]
  - ABDOMINAL PAIN UPPER [None]
  - THERMAL BURN [None]
  - OBSTRUCTION [None]
  - CROHN'S DISEASE [None]
